FAERS Safety Report 9825438 (Version 1)
Quarter: 2013Q4

REPORT INFORMATION
  Report Type: Spontaneous
  Country: US (occurrence: None)
  Receive Date: 20131223
  Receipt Date: 20131223
  Transmission Date: 20140711
  Serious: Yes (Other)
  Sender: FDA-Public Use
  Company Number: 219323LEO

PATIENT
  Age: 62 Year
  Sex: Female

DRUGS (1)
  1. PICATO [Suspect]
     Indication: BASAL CELL CARCINOMA
     Route: 061
     Dates: start: 2012

REACTIONS (7)
  - Eye swelling [None]
  - Eye irritation [None]
  - Scab [None]
  - Sinus disorder [None]
  - Off label use [None]
  - Drug administered at inappropriate site [None]
  - Medication error [None]
